FAERS Safety Report 15320009 (Version 1)
Quarter: 2018Q3

REPORT INFORMATION
  Report Type: Spontaneous
  Country: US (occurrence: US)
  Receive Date: 20180827
  Receipt Date: 20180827
  Transmission Date: 20181010
  Serious: No
  Sender: FDA-Public Use
  Company Number: US-ORPHAN EUROPE-2054256

PATIENT
  Age: 24 Month
  Sex: Female

DRUGS (1)
  1. CARBAGLU [Suspect]
     Active Substance: CARGLUMIC ACID
     Indication: AMMONIA ABNORMAL
     Route: 048

REACTIONS (1)
  - Anaemia [Unknown]
